FAERS Safety Report 6113663-X (Version None)
Quarter: 2009Q1

REPORT INFORMATION
  Report Type: 
  Country: None (occurrence: None)
  Receive Date: 20090312
  Receipt Date: 20090303
  Transmission Date: 20090719
  Serious: Yes (Hospitalization)
  Sender: FDA-Public Use
  Company Number: PHEH2009US02213

PATIENT
  Sex: Female
  Weight: 101.59 kg

DRUGS (10)
  1. RECLAST [Suspect]
     Indication: OSTEOPOROSIS
     Dosage: 5 MG ONCE YEARLY IV
     Dates: start: 20090218
  2. EVISTA [Concomitant]
     Indication: OSTEOPOROSIS
     Dosage: 60 MG, QD
  3. SIMVASTATIN [Concomitant]
     Dosage: UNK
  4. METOPROLOL TARTRATE [Concomitant]
     Dosage: 25 MG, BID
  5. ASPIRIN [Concomitant]
  6. PLAVIX [Concomitant]
     Dosage: 75 MG, QD
  7. ALDACTONE [Concomitant]
     Dosage: 25 MG, UNK
  8. OSCAL [Concomitant]
  9. ASCORBIC ACID [Concomitant]
  10. CLOPIDOGREL BISULFATE [Concomitant]

REACTIONS (8)
  - CATHETERISATION CARDIAC ABNORMAL [None]
  - CHEST PAIN [None]
  - CORONARY ARTERY STENOSIS [None]
  - DYSPNOEA [None]
  - HYPERHIDROSIS [None]
  - LEFT VENTRICULAR HYPERTROPHY [None]
  - NAUSEA [None]
  - TROPONIN INCREASED [None]
